FAERS Safety Report 8780988 (Version 2)
Quarter: 2013Q4

REPORT INFORMATION
  Report Type: Spontaneous
  Country: US (occurrence: US)
  Receive Date: 20120913
  Receipt Date: 20131101
  Transmission Date: 20140711
  Serious: No
  Sender: FDA-Public Use
  Company Number: US-009507513-1208USA004185

PATIENT
  Sex: Female

DRUGS (5)
  1. VICTRELIS [Suspect]
     Dosage: 4 DF, TID
     Route: 048
  2. REBETOL [Suspect]
  3. PEGASYS [Suspect]
     Dosage: 180 MICROGRAM/ 0.5 ML PFS
  4. IBUPROFEN [Concomitant]
  5. PROZAC [Concomitant]

REACTIONS (4)
  - Injection site pain [Unknown]
  - Pruritus [Unknown]
  - Nausea [Unknown]
  - Injection site bruising [Unknown]
